FAERS Safety Report 12335188 (Version 1)
Quarter: 2016Q2

REPORT INFORMATION
  Report Type: Spontaneous
  Country: GB (occurrence: GB)
  Receive Date: 20160504
  Receipt Date: 20160504
  Transmission Date: 20160815
  Serious: Yes (Other)
  Sender: FDA-Public Use
  Company Number: PHHY2016GB058342

PATIENT
  Age: 35 Year
  Sex: Male
  Weight: 75 kg

DRUGS (1)
  1. BUDESONIDE. [Suspect]
     Active Substance: BUDESONIDE
     Indication: CROHN^S DISEASE
     Dosage: 9MG REDUCING TO 3MG OVER 3 WEEKS (3/52)
     Route: 048

REACTIONS (3)
  - Oral herpes [Recovered/Resolved]
  - Fatigue [Unknown]
  - Loss of libido [Unknown]
